FAERS Safety Report 8836955 (Version 3)
Quarter: 2013Q4

REPORT INFORMATION
  Report Type: Spontaneous
  Country: GB (occurrence: GB)
  Receive Date: 20121012
  Receipt Date: 20131014
  Transmission Date: 20140711
  Serious: Yes (Life-Threatening, Hospitalization, Disabling, Other)
  Sender: FDA-Public Use
  Company Number: GB-RANBAXY-2012R1-60740

PATIENT
  Age: 50 Year
  Sex: Female
  Weight: 50 kg

DRUGS (5)
  1. RISPERIDONE [Suspect]
     Indication: PRODUCT USED FOR UNKNOWN INDICATION
     Dosage: UNK
     Route: 048
     Dates: start: 2008
  2. RISPERIDONE [Suspect]
     Dosage: 1 MG, QD
     Route: 065
     Dates: start: 20080924
  3. RISPERIDONE [Suspect]
     Indication: ABNORMAL BEHAVIOUR
     Dosage: 1 MG, QD
     Route: 048
     Dates: start: 2008, end: 200903
  4. BUTRANS [Concomitant]
     Indication: PRODUCT USED FOR UNKNOWN INDICATION
     Dosage: UNK
     Route: 065
  5. CITALOPRAM [Concomitant]
     Indication: PRODUCT USED FOR UNKNOWN INDICATION
     Dosage: UNK
     Route: 065

REACTIONS (21)
  - Extrapyramidal disorder [Not Recovered/Not Resolved]
  - Pleurothotonus [Not Recovered/Not Resolved]
  - Dystonia [Not Recovered/Not Resolved]
  - Oromandibular dystonia [Not Recovered/Not Resolved]
  - Aphasia [Not Recovered/Not Resolved]
  - Confusional state [Unknown]
  - Dyspnoea [Unknown]
  - Salivary hypersecretion [Unknown]
  - Spasmodic dysphonia [Unknown]
  - Emotional distress [Unknown]
  - Sedation [Not Recovered/Not Resolved]
  - Somnolence [Unknown]
  - Muscle spasticity [Unknown]
  - Sydenham^s chorea [Unknown]
  - Tardive dyskinesia [Unknown]
  - Aggression [Not Recovered/Not Resolved]
  - Condition aggravated [Unknown]
  - Quadriplegia [Not Recovered/Not Resolved]
  - Salivary hypersecretion [Unknown]
  - Stupor [Unknown]
  - Overdose [Unknown]
